FAERS Safety Report 5720429-9 (Version None)
Quarter: 2008Q2

REPORT INFORMATION
  Report Type: 
  Country: None (occurrence: None)
  Receive Date: 20080428
  Receipt Date: 20080416
  Transmission Date: 20081010
  Serious: Yes (Hospitalization, Other)
  Sender: FDA-Public Use
  Company Number: US-PFIZER INC-2008034318

PATIENT
  Sex: Female

DRUGS (3)
  1. CHANTIX [Suspect]
     Indication: SMOKING CESSATION THERAPY
  2. NOVOLOG [Concomitant]
  3. PRINIVIL [Concomitant]

REACTIONS (6)
  - BLOOD GLUCOSE INCREASED [None]
  - CEREBRAL HAEMORRHAGE [None]
  - DIZZINESS [None]
  - HEADACHE [None]
  - NAUSEA [None]
  - UNEVALUABLE EVENT [None]
